FAERS Safety Report 7346018-0 (Version None)
Quarter: 2011Q1

REPORT INFORMATION
  Report Type: 
  Country: None (occurrence: None)
  Receive Date: 20110311
  Receipt Date: 20110225
  Transmission Date: 20110831
  Serious: Yes (Hospitalization)
  Sender: FDA-Public Use
  Company Number: CH-RANBAXY-2011R1-42757

PATIENT
  Age: 44 Year
  Sex: Male

DRUGS (5)
  1. PHENOBARBITAL [Suspect]
     Indication: CONVULSION
     Dosage: UNK
     Route: 065
  2. CICLOSPORIN [Suspect]
     Dosage: 500 MG BID
     Route: 065
  3. MYCOPHENOLATE MOFETIL [Concomitant]
     Indication: PRODUCT USED FOR UNKNOWN INDICATION
     Dosage: UNK
     Route: 065
  4. PREDNISONE [Concomitant]
     Indication: IMMUNOSUPPRESSION
     Dosage: UNK
     Route: 065
  5. CICLOSPORIN [Suspect]
     Indication: IMMUNOSUPPRESSION
     Dosage: UNK
     Route: 065

REACTIONS (2)
  - DRUG INTERACTION [None]
  - POST TRANSPLANT DISTAL LIMB SYNDROME [None]
